FAERS Safety Report 8577338-X (Version None)
Quarter: 2012Q3

REPORT INFORMATION
  Report Type: 
  Country: None (occurrence: None)
  Receive Date: 20120807
  Receipt Date: 20120718
  Transmission Date: 20120928
  Serious: No
  Sender: FDA-Public Use
  Company Number: US-ASTRAZENECA-2012SE52708

PATIENT
  Age: 73 Year
  Sex: Female
  Weight: 72.6 kg

DRUGS (4)
  1. SYNTHROID [Concomitant]
  2. PULMICORT FLEXHALER [Suspect]
     Indication: CHRONIC OBSTRUCTIVE PULMONARY DISEASE
     Dosage: TWO PUFFS, TWICE A DAY
     Route: 055
  3. XOPEMEX [Concomitant]
  4. SINGULAIR [Concomitant]

REACTIONS (2)
  - HEADACHE [None]
  - DRUG DOSE OMISSION [None]
